FAERS Safety Report 6842903-4 (Version None)
Quarter: 2010Q3

REPORT INFORMATION
  Report Type: 
  Country: None (occurrence: None)
  Receive Date: 20100714
  Receipt Date: 20070806
  Transmission Date: 20110219
  Serious: No
  Sender: FDA-Public Use
  Company Number: US-PFIZER INC-2007066486

PATIENT
  Sex: Male
  Weight: 100 kg

DRUGS (8)
  1. CHANTIX [Suspect]
     Indication: SMOKING CESSATION THERAPY
     Route: 048
     Dates: start: 20070520, end: 20070701
  2. ZOCOR [Concomitant]
  3. GALENIC /BENAZEPRIL/HYDROCHLOROTHIAZIDE/ [Concomitant]
  4. FINASTERIDE [Concomitant]
  5. ALLEGRA [Concomitant]
  6. ACETYLSALICYLIC ACID [Concomitant]
  7. TYLENOL [Concomitant]
  8. FLONASE [Concomitant]

REACTIONS (1)
  - NAUSEA [None]
